FAERS Safety Report 21418318 (Version 1)
Quarter: 2022Q4

REPORT INFORMATION
  Report Type: Spontaneous
  Country: US (occurrence: None)
  Receive Date: 20221005
  Receipt Date: 20221005
  Transmission Date: 20230113
  Serious: Yes (unspecified)
  Sender: FDA-Public Use
  Company Number: None

PATIENT
  Age: 38 Year
  Sex: Female
  Weight: 103.5 kg

DRUGS (5)
  1. INJECTAFER [Suspect]
     Active Substance: FERRIC CARBOXYMALTOSE
     Indication: Iron deficiency
     Dates: start: 20220829, end: 20220907
  2. SYNTHROID [Concomitant]
     Active Substance: LEVOTHYROXINE SODIUM
  3. cymotel [Concomitant]
  4. Multvitamin [Concomitant]
  5. PRASTERONE [Concomitant]
     Active Substance: PRASTERONE

REACTIONS (7)
  - Bone pain [None]
  - Myalgia [None]
  - Disturbance in attention [None]
  - Fatigue [None]
  - Blood phosphorus decreased [None]
  - Loss of personal independence in daily activities [None]
  - Impaired driving ability [None]

NARRATIVE: CASE EVENT DATE: 20220909
